FAERS Safety Report 4641290-X (Version None)
Quarter: 2005Q2

REPORT INFORMATION
  Report Type: 
  Country: None (occurrence: None)
  Receive Date: 20050421
  Receipt Date: 20050408
  Transmission Date: 20051028
  Serious: Yes (Death, Life-Threatening, Hospitalization)
  Sender: FDA-Public Use
  Company Number: FR-NOVOPROD-243453

PATIENT
  Age: 53 Year
  Sex: Male
  Weight: 63 kg

DRUGS (6)
  1. NORDITROPIN [Suspect]
     Indication: GROWTH HORMONE DEFICIENCY
     Dosage: .2 MG, UNK
     Route: 058
     Dates: start: 20030321, end: 20041115
  2. MONO-TILDIEM [Concomitant]
     Indication: HYPERTENSION
     Dosage: 200 MG, UNK
     Route: 048
     Dates: start: 19820101
  3. LEVOTHYROX [Concomitant]
     Indication: HYPOTHALAMO-PITUITARY DISORDERS
     Dosage: 125 UG, UNK
     Route: 048
     Dates: start: 19960601
  4. HYDROCORTISON [Concomitant]
     Indication: HYPOTHALAMO-PITUITARY DISORDERS
     Dosage: 20 MG, UNK
     Route: 048
     Dates: start: 19960601
  5. PANTESTON [Concomitant]
     Indication: HYPOTHALAMO-PITUITARY DISORDERS
     Dosage: 400 MG, UNK
     Route: 048
     Dates: start: 19961014
  6. DIFRAREL [Concomitant]
     Dosage: 300 MG, UNK
     Route: 048
     Dates: start: 20020101

REACTIONS (6)
  - ATELECTASIS [None]
  - DYSPNOEA [None]
  - LUNG ADENOCARCINOMA [None]
  - PLEURA CARCINOMA [None]
  - PLEURAL EFFUSION [None]
  - PLEURAL FIBROSIS [None]
